FAERS Safety Report 16006665 (Version 2)
Quarter: 2019Q1

REPORT INFORMATION
  Report Type: Spontaneous
  Country: US (occurrence: US)
  Receive Date: 20190226
  Receipt Date: 20190327
  Transmission Date: 20190418
  Serious: No
  Sender: FDA-Public Use
  Company Number: US-ASTRAZENECA-2019SE18906

PATIENT
  Age: 23865 Day
  Sex: Male
  Weight: 113.9 kg

DRUGS (1)
  1. BYDUREON BCISE [Suspect]
     Active Substance: EXENATIDE
     Indication: DIABETES MELLITUS
     Route: 058
     Dates: start: 201809

REACTIONS (3)
  - Blood glucose increased [Unknown]
  - Incorrect dose administered by product [Unknown]
  - Device leakage [Recovered/Resolved with Sequelae]

NARRATIVE: CASE EVENT DATE: 20190115
